FAERS Safety Report 5840913-7 (Version None)
Quarter: 2008Q3

REPORT INFORMATION
  Report Type: 
  Country: None (occurrence: None)
  Receive Date: 20080811
  Receipt Date: 20080801
  Transmission Date: 20090109
  Serious: Yes (Other)
  Sender: FDA-Public Use
  Company Number: ES-PFIZER INC-2008064000

PATIENT
  Age: 45 Year
  Sex: Female

DRUGS (3)
  1. LYRICA [Suspect]
     Indication: TRIGEMINAL NEURALGIA
     Route: 048
  2. TRADONAL [Interacting]
     Indication: TRIGEMINAL NEURALGIA
     Route: 048
     Dates: start: 20080412, end: 20080413
  3. TRILEPTAL [Interacting]
     Indication: TRIGEMINAL NEURALGIA
     Route: 048

REACTIONS (3)
  - DRUG INTERACTION [None]
  - DYSARTHRIA [None]
  - MUSCULAR WEAKNESS [None]
